FAERS Safety Report 10495019 (Version 1)
Quarter: 2014Q3

REPORT INFORMATION
  Report Type: Spontaneous
  Country: US (occurrence: None)
  Receive Date: 20140815
  Receipt Date: 20140815
  Transmission Date: 20150326
  Serious: Yes (Other)
  Sender: FDA-Public Use
  Company Number: ADR-2014-0050

PATIENT
  Age: 46 Year
  Sex: Female

DRUGS (2)
  1. BACLOFEN INTRATHECAL [Suspect]
     Active Substance: BACLOFEN
     Indication: MUSCLE SPASTICITY
  2. HYDROMORPHONE (INTRATHECAL) 8.0 MG/ML [Suspect]
     Active Substance: HYDROMORPHONE

REACTIONS (10)
  - Muscle spasms [None]
  - Amnesia [None]
  - Pain [None]
  - Altered state of consciousness [None]
  - Urinary incontinence [None]
  - Tremor [None]
  - Fall [None]
  - Convulsion [None]
  - Therapeutic response decreased [None]
  - Fatigue [None]

NARRATIVE: CASE EVENT DATE: 20140322
